FAERS Safety Report 8549211-4 (Version None)
Quarter: 2012Q3

REPORT INFORMATION
  Report Type: 
  Country: None (occurrence: None)
  Receive Date: 20120730
  Receipt Date: 20120725
  Transmission Date: 20120928
  Serious: No
  Sender: FDA-Public Use
  Company Number: US-PFIZER INC-2012181468

PATIENT
  Sex: Female
  Weight: 77 kg

DRUGS (10)
  1. CYCLOBENZAPRINE [Suspect]
     Indication: MUSCLE TIGHTNESS
  2. KLONOPIN [Concomitant]
     Indication: DEPRESSION
     Dosage: UNK
  3. KLONOPIN [Concomitant]
     Indication: ANXIETY
  4. EFFEXOR XR [Concomitant]
     Indication: DEPRESSION
     Dosage: 75 MG, 3X/DAY
  5. CYCLOBENZAPRINE [Suspect]
     Indication: BRACHIAL PLEXOPATHY
     Dosage: 10 MG, 2X/DAY
     Dates: start: 20120516, end: 20120520
  6. CYCLOBENZAPRINE [Suspect]
     Indication: NERVE COMPRESSION
  7. LORTAB [Suspect]
     Indication: PAIN
     Dosage: UNK
     Dates: start: 20120101
  8. SKELAXIN [Suspect]
     Indication: BRACHIAL PLEXOPATHY
     Dosage: 800 MG, 4X/DAY
     Dates: start: 20120520, end: 20120101
  9. SKELAXIN [Suspect]
     Indication: NERVE COMPRESSION
  10. SKELAXIN [Suspect]
     Indication: MUSCLE TIGHTNESS

REACTIONS (10)
  - WEIGHT DECREASED [None]
  - MUSCLE STRAIN [None]
  - MUSCULOSKELETAL STIFFNESS [None]
  - HEADACHE [None]
  - HYPOAESTHESIA [None]
  - PARAESTHESIA [None]
  - MUSCULOSKELETAL DISCOMFORT [None]
  - FEELING ABNORMAL [None]
  - INSOMNIA [None]
  - PAIN [None]
